FAERS Safety Report 23213994 (Version 1)
Quarter: 2023Q4

REPORT INFORMATION
  Report Type: Spontaneous
  Country: US (occurrence: US)
  Receive Date: 20231121
  Receipt Date: 20231121
  Transmission Date: 20240110
  Serious: Yes (Other)
  Sender: FDA-Public Use
  Company Number: US-009507513-2311USA005960

PATIENT
  Age: 56 Year
  Sex: Male

DRUGS (2)
  1. NOXAFIL [Suspect]
     Active Substance: POSACONAZOLE
     Indication: Arthritis fungal
     Dosage: UNK
     Route: 048
  2. NOXAFIL [Suspect]
     Active Substance: POSACONAZOLE
     Indication: Paracoccidioides infection

REACTIONS (3)
  - Glucocorticoid deficiency [Unknown]
  - Pseudoaldosteronism [Recovered/Resolved]
  - Product use in unapproved indication [Unknown]
